FAERS Safety Report 7005107-0 (Version None)
Quarter: 2010Q3

REPORT INFORMATION
  Report Type: 
  Country: None (occurrence: None)
  Receive Date: 20100921
  Receipt Date: 20100921
  Transmission Date: 20110219
  Serious: Yes (Hospitalization, Other)
  Sender: FDA-Public Use
  Company Number: GB-TEVA-247487ISR

PATIENT
  Age: 55 Year
  Sex: Female

DRUGS (2)
  1. PERINDOPRIL ERBUMINE TABLETS, 2 MG, 4 MG, AND 8 MG [Suspect]
     Indication: ATRIAL FIBRILLATION
     Route: 048
  2. HYDRALAZINE HCL [Suspect]
     Indication: ATRIAL FIBRILLATION
     Dates: start: 20050101, end: 20080101

REACTIONS (2)
  - ANTI-NEUTROPHIL CYTOPLASMIC ANTIBODY POSITIVE VASCULITIS [None]
  - SYSTEMIC LUPUS ERYTHEMATOSUS [None]
